FAERS Safety Report 8114655-1 (Version None)
Quarter: 2012Q1

REPORT INFORMATION
  Report Type: 
  Country: None (occurrence: None)
  Receive Date: 20120206
  Receipt Date: 20120131
  Transmission Date: 20120608
  Serious: Yes (Disabling, Other)
  Sender: FDA-Public Use
  Company Number: BR-PFIZER INC-2011211933

PATIENT
  Age: 76 Year
  Sex: Male
  Weight: 90 kg

DRUGS (7)
  1. VIAGRA [Suspect]
     Dosage: THE EIGHTH PART OF A 25MG TABLET DAILY
     Route: 048
  2. CASTANHA DE INDIA COMPOSTA [Concomitant]
  3. VIAGRA [Suspect]
     Indication: ERECTILE DYSFUNCTION
     Dosage: UNK
     Route: 048
     Dates: start: 20090101
  4. GUARANA [Concomitant]
  5. LOVAZA [Concomitant]
  6. GINKGO BILOBA [Concomitant]
  7. VIAGRA [Suspect]
     Dosage: QUARTER OF A 25MG TABLET DAILY
     Route: 048
     Dates: start: 20090101

REACTIONS (5)
  - CONJUNCTIVITIS [None]
  - VISUAL ACUITY REDUCED [None]
  - RETINAL DEGENERATION [None]
  - BLINDNESS [None]
  - GLAUCOMA [None]
